FAERS Safety Report 13849567 (Version 1)
Quarter: 2017Q3

REPORT INFORMATION
  Report Type: Spontaneous
  Country: US (occurrence: US)
  Receive Date: 20170809
  Receipt Date: 20170809
  Transmission Date: 20171127
  Serious: Yes (Other)
  Sender: FDA-Public Use
  Company Number: None

PATIENT
  Age: 33 Year
  Sex: Female

DRUGS (1)
  1. DESVENLAFAXINE 100MG ER [Suspect]
     Active Substance: DESVENLAFAXINE
     Indication: MAJOR DEPRESSION
     Route: 048
     Dates: start: 20170401, end: 20170801

REACTIONS (6)
  - Disturbance in attention [None]
  - Apathy [None]
  - Depressed mood [None]
  - Product substitution issue [None]
  - Feeling abnormal [None]
  - Weight increased [None]

NARRATIVE: CASE EVENT DATE: 20170728
